FAERS Safety Report 8973716 (Version 1)
Quarter: 2012Q4

REPORT INFORMATION
  Report Type: 
  Country: US (occurrence: US)
  Receive Date: 20121218
  Receipt Date: 20121218
  Transmission Date: 20130627
  Serious: Yes (Death)
  Sender: FDA-Public Use
  Company Number: US-INCYTE CORPORATION-2012IN002592

PATIENT
  Sex: Female

DRUGS (11)
  1. JAKAFI [Suspect]
     Indication: ESSENTIAL THROMBOCYTHAEMIA
     Dosage: 5 mg, bid
     Route: 048
  2. DIGOXIN [Concomitant]
  3. OMEPRAZOLE [Concomitant]
  4. METOPROLOL [Concomitant]
  5. LEXAPRO [Concomitant]
  6. LASIX [Concomitant]
  7. LEVOTHYROXINE [Concomitant]
  8. PROCARDIA [Concomitant]
  9. XANAX [Concomitant]
  10. AMBIEN [Concomitant]
  11. TYLENOL WITH CODEINE [Concomitant]

REACTIONS (1)
  - Death [Fatal]
